FAERS Safety Report 6141754-6 (Version None)
Quarter: 2009Q2

REPORT INFORMATION
  Report Type: 
  Country: None (occurrence: None)
  Receive Date: 20090402
  Receipt Date: 20080828
  Transmission Date: 20091009
  Serious: No
  Sender: FDA-Public Use
  Company Number: US-ABBOTT-08P-163-0472902-00

PATIENT
  Sex: Female
  Weight: 65.83 kg

DRUGS (6)
  1. LUPRON DEPOT [Suspect]
     Indication: ENDOMETRIOSIS
     Route: 030
     Dates: start: 20080827
  2. CLONAZEPAM [Concomitant]
     Indication: ANXIETY
     Route: 048
  3. PROPRANOLOL [Concomitant]
     Indication: HYPERTENSION
     Route: 048
  4. PANLOR DC [Concomitant]
     Indication: MIGRAINE
     Route: 048
  5. ANTIDEPRESSIVE [Concomitant]
     Indication: DEPRESSION
     Route: 048
  6. DULOXETINE HYDROCHLORIDE [Concomitant]
     Indication: DEPRESSION
     Route: 048

REACTIONS (5)
  - CHEST PAIN [None]
  - FLATULENCE [None]
  - MUSCULOSKELETAL PAIN [None]
  - NAUSEA [None]
  - SENSATION OF HEAVINESS [None]
